FAERS Safety Report 20686934 (Version 1)
Quarter: 2022Q2

REPORT INFORMATION
  Report Type: Spontaneous
  Country: US (occurrence: US)
  Receive Date: 20220407
  Receipt Date: 20220407
  Transmission Date: 20220721
  Serious: Yes (Death, Other)
  Sender: FDA-Public Use
  Company Number: US-SA-SAC20220406001645

PATIENT
  Age: 86 Year
  Sex: Female

DRUGS (1)
  1. ZANTAC [Suspect]
     Active Substance: RANITIDINE HYDROCHLORIDE
     Indication: Hyperchlorhydria
     Dosage: 75 MG, QW
     Route: 065
     Dates: start: 201001, end: 202004

REACTIONS (2)
  - Renal cancer [Fatal]
  - Uterine cancer [Unknown]

NARRATIVE: CASE EVENT DATE: 20191001
